FAERS Safety Report 6775184-0 (Version None)
Quarter: 2010Q2

REPORT INFORMATION
  Report Type: 
  Country: None (occurrence: None)
  Receive Date: 20100617
  Receipt Date: 20100607
  Transmission Date: 20101027
  Serious: Yes (Other)
  Sender: FDA-Public Use
  Company Number: BR-PFIZER INC-2010070815

PATIENT
  Age: 74 Year
  Sex: Female

DRUGS (5)
  1. LIPITOR [Suspect]
     Indication: BLOOD TRIGLYCERIDES INCREASED
     Dosage: 20 MG, UNK
     Route: 048
     Dates: start: 20070101, end: 20090101
  2. LIPITOR [Suspect]
     Dosage: 10 MG, UNK
  3. CIPROFIBRATE [Suspect]
     Dosage: UNK
     Dates: start: 20070607, end: 20100307
  4. ATENOLOL [Concomitant]
     Dosage: UNK
     Dates: start: 20070607
  5. ACETYLSALICYLIC ACID [Concomitant]
     Dosage: UNK
     Dates: start: 20070607

REACTIONS (2)
  - BLOOD CREATININE INCREASED [None]
  - DENGUE FEVER [None]
